FAERS Safety Report 8082290-X (Version None)
Quarter: 2012Q1

REPORT INFORMATION
  Report Type: 
  Country: None (occurrence: None)
  Receive Date: 20120127
  Receipt Date: 20110215
  Transmission Date: 20120608
  Serious: No
  Sender: FDA-Public Use
  Company Number: US-ABBOTT-11P-163-0705546-00

PATIENT
  Age: 53 Year
  Sex: Female

DRUGS (12)
  1. AMITRIPTYLINE HCL [Concomitant]
     Indication: INSOMNIA
     Dosage: AT BEDTIME
  2. TRAZODONE HCL [Concomitant]
     Indication: INSOMNIA
     Dosage: AT BEDTIME
  3. CLONAZEPAM [Concomitant]
     Indication: RESTLESS LEGS SYNDROME
  4. MORPHINE [Concomitant]
     Indication: PRODUCT USED FOR UNKNOWN INDICATION
     Dosage: 1 TABLET UP TO FOUR TIMES DAILY
  5. MORPHINE [Concomitant]
     Indication: PAIN
     Dosage: 1 TABLET UP TO THREE TIMES DAILY
  6. VICODIN [Concomitant]
     Indication: PAIN
     Dosage: 500/50MG ONCE DAILY
  7. PROMETHAZINE [Concomitant]
     Indication: VOMITING
     Dosage: 1 TABLET UP TO QID, AS REQUIRED
  8. VITAMIN B-12 [Concomitant]
     Indication: NUTRITIONAL SUPPORT
     Route: 050
  9. METOPROLOL TARTRATE [Concomitant]
     Indication: HYPERTENSION
     Dosage: AT BEDTIME
  10. PROMETHAZINE [Concomitant]
     Indication: NAUSEA
  11. HUMIRA [Suspect]
     Indication: CROHN'S DISEASE
     Dates: start: 20100101
  12. HUMIRA [Suspect]

REACTIONS (1)
  - SWELLING [None]
